FAERS Safety Report 8212764-X (Version None)
Quarter: 2012Q1

REPORT INFORMATION
  Report Type: 
  Country: None (occurrence: None)
  Receive Date: 20120229
  Receipt Date: 20110308
  Transmission Date: 20120608
  Serious: Yes (Other)
  Sender: FDA-Public Use
  Company Number: US-JNJFOC-20110305218

PATIENT
  Age: 68 Year
  Sex: Female
  Weight: 58.9676 kg

DRUGS (3)
  1. MOTRIN IB [Suspect]
     Indication: BACK PAIN
     Dosage: 200 MG, 1 IN 1 DAY, ORAL
     Route: 048
     Dates: start: 20110305, end: 20110308
  2. ASPIRIN [Suspect]
     Indication: CARDIAC DISORDER
     Dosage: 81 MG, ORAL
     Route: 048
     Dates: start: 20080101
  3. SIMVASTATIN [Concomitant]

REACTIONS (1)
  - RECTAL HAEMORRHAGE [None]
